FAERS Safety Report 18748011 (Version 1)
Quarter: 2021Q1

REPORT INFORMATION
  Report Type: Spontaneous
  Country: US (occurrence: US)
  Receive Date: 20210116
  Receipt Date: 20210116
  Transmission Date: 20210419
  Serious: Yes (Hospitalization, Other)
  Sender: FDA-Public Use
  Company Number: US-AUROBINDO-AUR-APL-2021-001481

PATIENT
  Age: 29 Year
  Sex: Female

DRUGS (5)
  1. MIRALAX [Concomitant]
     Active Substance: POLYETHYLENE GLYCOL 3350
     Indication: ABDOMINAL PAIN
     Dosage: UNK
     Route: 065
  2. NIFEDIPINE. [Suspect]
     Active Substance: NIFEDIPINE
     Indication: PRE-ECLAMPSIA
     Dosage: UNK
     Route: 065
  3. MILK OF MAGNESIA [Suspect]
     Active Substance: MAGNESIUM HYDROXIDE
     Indication: ABDOMINAL PAIN
     Dosage: UNK
     Route: 065
  4. LABETALOL [Concomitant]
     Active Substance: LABETALOL\LABETALOL HYDROCHLORIDE
     Indication: PRE-ECLAMPSIA
     Dosage: UNK
     Route: 042
  5. MILK OF MAGNESIA [Suspect]
     Active Substance: MAGNESIUM HYDROXIDE
     Indication: PRE-ECLAMPSIA
     Dosage: UNK
     Route: 042

REACTIONS (16)
  - Muscular weakness [Unknown]
  - Respiratory depression [Unknown]
  - Toxicity to various agents [Unknown]
  - Hypotension [Unknown]
  - Sinus tachycardia [Unknown]
  - Dizziness [Unknown]
  - Lethargy [Unknown]
  - Hypermagnesaemia [Recovering/Resolving]
  - Hyporeflexia [Unknown]
  - Flushing [Unknown]
  - Abdominal distension [Unknown]
  - Abdominal pain [Unknown]
  - Bradycardia [Unknown]
  - Maternal exposure during pregnancy [Unknown]
  - Cardiotoxicity [Unknown]
  - Renal failure [Recovered/Resolved]
